FAERS Safety Report 6863809-0 (Version None)
Quarter: 2010Q3

REPORT INFORMATION
  Report Type: 
  Country: None (occurrence: None)
  Receive Date: 20100721
  Receipt Date: 20100709
  Transmission Date: 20110219
  Serious: Yes (Other)
  Sender: FDA-Public Use
  Company Number: US-WATSON-2010-09116

PATIENT
  Sex: Male
  Weight: 90.703 kg

DRUGS (8)
  1. FENTANYL-25 [Suspect]
     Indication: NEUROPATHY PERIPHERAL
     Dosage: ^0.25 MG, EVERY 3 DAYS^
     Route: 062
  2. NEURONTIN [Suspect]
     Indication: NEUROPATHY PERIPHERAL
     Dosage: UNK
     Route: 048
     Dates: start: 20050101
  3. METFORMIN HCL [Suspect]
     Indication: DIABETES MELLITUS
     Dosage: UNK
     Route: 065
  4. GABAPENTIN [Suspect]
     Indication: NEUROPATHY PERIPHERAL
     Dosage: 800 MG, 4X/DAY
     Route: 048
  5. KEFLEX [Suspect]
     Indication: SINUSITIS
     Dosage: 500 MG, 3X/DAY
     Route: 048
  6. VICODIN [Suspect]
     Indication: NEUROPATHY PERIPHERAL
     Dosage: 10/650 MG 3X/DAY
     Route: 048
  7. LANTUS [Concomitant]
     Indication: PRODUCT USED FOR UNKNOWN INDICATION
     Dosage: INJECTION
     Route: 065
  8. HUMALOG [Concomitant]
     Indication: PRODUCT USED FOR UNKNOWN INDICATION
     Dosage: UNK
     Route: 065

REACTIONS (11)
  - ABDOMINAL PAIN UPPER [None]
  - CONSTIPATION [None]
  - DRUG INEFFECTIVE [None]
  - DRUG INTERACTION [None]
  - DYSURIA [None]
  - FATIGUE [None]
  - HAND FRACTURE [None]
  - HYPERSOMNIA [None]
  - LIVER DISORDER [None]
  - MEMORY IMPAIRMENT [None]
  - MOOD ALTERED [None]
